FAERS Safety Report 9473059 (Version 1)
Quarter: 2013Q3

REPORT INFORMATION
  Report Type: Spontaneous
  Country: US (occurrence: US)
  Receive Date: 20130823
  Receipt Date: 20130823
  Transmission Date: 20140515
  Serious: No
  Sender: FDA-Public Use
  Company Number: US-BRISTOL-MYERS SQUIBB COMPANY-17387648

PATIENT
  Age: 48 Year
  Sex: Male

DRUGS (4)
  1. SPRYCEL (CML) TABS 100 MG [Suspect]
     Indication: CHRONIC MYELOID LEUKAEMIA
  2. ZOLOFT [Concomitant]
  3. PROMETHAZINE [Concomitant]
  4. ZOCOR [Concomitant]

REACTIONS (2)
  - Headache [Recovering/Resolving]
  - Vomiting [Unknown]
